FAERS Safety Report 7013607-2 (Version None)
Quarter: 2010Q3

REPORT INFORMATION
  Report Type: 
  Country: None (occurrence: None)
  Receive Date: 20100924
  Receipt Date: 20100916
  Transmission Date: 20110219
  Serious: Yes (Life-Threatening, Other)
  Sender: FDA-Public Use
  Company Number: US-AMGEN-QUU431277

PATIENT
  Sex: Male
  Weight: 152.4 kg

DRUGS (11)
  1. NPLATE [Suspect]
     Indication: IDIOPATHIC THROMBOCYTOPENIC PURPURA
     Route: 058
     Dates: start: 20090401, end: 20100719
  2. PROMACTA [Concomitant]
     Dates: start: 20100701
  3. LIPITOR [Concomitant]
     Route: 048
  4. METOPROLOL TARTRATE [Concomitant]
     Route: 048
  5. MULTI-VITAMINS [Concomitant]
     Route: 048
  6. FRAGMIN [Concomitant]
     Dates: start: 20100726
  7. PREDNISONE TAB [Concomitant]
     Dates: start: 20060101
  8. AMLODIPINE [Concomitant]
     Route: 048
  9. ACETAMINOPHEN [Concomitant]
     Route: 048
  10. IMMU-G [Concomitant]
     Route: 042
     Dates: start: 20090401, end: 20090424
  11. RITUXAN [Concomitant]

REACTIONS (6)
  - ATELECTASIS [None]
  - IDIOPATHIC THROMBOCYTOPENIC PURPURA [None]
  - PLATELET COUNT DECREASED [None]
  - PNEUMONITIS [None]
  - PULMONARY EMBOLISM [None]
  - PULMONARY THROMBOSIS [None]
